FAERS Safety Report 24056182 (Version 1)
Quarter: 2024Q3

REPORT INFORMATION
  Report Type: Spontaneous
  Country: US (occurrence: None)
  Receive Date: 20240704
  Receipt Date: 20240704
  Transmission Date: 20241016
  Serious: Yes (Hospitalization)
  Sender: Public
  Company Number: None

PATIENT
  Age: 47 Year
  Sex: Female

DRUGS (1)
  1. AUBAGIO [Suspect]
     Active Substance: TERIFLUNOMIDE
     Indication: Multiple sclerosis
     Dosage: 7MG DAILY ORALLY
     Route: 048
     Dates: start: 202209

REACTIONS (3)
  - Peripheral nerve lesion [None]
  - Pain in extremity [None]
  - Condition aggravated [None]

NARRATIVE: CASE EVENT DATE: 20240501
